FAERS Safety Report 12374432 (Version 1)
Quarter: 2016Q2

REPORT INFORMATION
  Report Type: Spontaneous
  Country: GB (occurrence: GB)
  Receive Date: 20160517
  Receipt Date: 20160517
  Transmission Date: 20160815
  Serious: Yes (Hospitalization)
  Sender: FDA-Public Use
  Company Number: GB-SUN PHARMACEUTICAL INDUSTRIES LTD-2016RR-116662

PATIENT

DRUGS (2)
  1. CHLORAMPHENICOL PALMITATE [Concomitant]
     Active Substance: CHLORAMPHENICOL PALMITATE
     Indication: PRODUCT USED FOR UNKNOWN INDICATION
     Dosage: UNK
     Route: 065
  2. VENLAFAXINE [Suspect]
     Active Substance: VENLAFAXINE HYDROCHLORIDE
     Indication: DEPRESSION
     Dosage: MORNING
     Route: 048
     Dates: start: 201602

REACTIONS (13)
  - Fatigue [Unknown]
  - Memory impairment [Unknown]
  - Asthenia [Unknown]
  - Eye pain [Unknown]
  - Food aversion [Unknown]
  - Disturbance in attention [Unknown]
  - Hyperhidrosis [Unknown]
  - Aphasia [Unknown]
  - Headache [Unknown]
  - Apathy [Unknown]
  - Vomiting [Unknown]
  - Dehydration [Unknown]
  - Nausea [Unknown]
